FAERS Safety Report 24687144 (Version 1)
Quarter: 2024Q4

REPORT INFORMATION
  Report Type: Spontaneous
  Country: US (occurrence: None)
  Receive Date: 20241130
  Receipt Date: 20241130
  Transmission Date: 20250115
  Serious: Yes (Other)
  Sender: Public
  Company Number: None

PATIENT
  Age: 59 Year
  Sex: Female
  Weight: 71.1 kg

DRUGS (1)
  1. XARELTO [Suspect]
     Active Substance: RIVAROXABAN
     Indication: Pulmonary embolism
     Dosage: OTHER QUANTITY : 1 TABLET(S);?FREQUENCY : DAILY;?
     Route: 048
     Dates: start: 20211130

REACTIONS (6)
  - Abdominal distension [None]
  - Abdominal discomfort [None]
  - Dyspnoea [None]
  - Asthenia [None]
  - Dizziness [None]
  - Weight increased [None]

NARRATIVE: CASE EVENT DATE: 20220112
